FAERS Safety Report 13405472 (Version 2)
Quarter: 2017Q4

REPORT INFORMATION
  Report Type: Spontaneous
  Country: US (occurrence: US)
  Receive Date: 20170405
  Receipt Date: 20171218
  Transmission Date: 20180320
  Serious: Yes (Other)
  Sender: FDA-Public Use
  Company Number: US-ORION CORPORATION ORION PHARMA-ENT 2016-0217

PATIENT
  Age: 33 Year
  Sex: Female

DRUGS (9)
  1. ROPINIROLE. [Suspect]
     Active Substance: ROPINIROLE
     Indication: PARKINSONISM
     Route: 065
  2. ENTACAPONE. [Suspect]
     Active Substance: ENTACAPONE
     Indication: FALL
  3. ENTACAPONE. [Suspect]
     Active Substance: ENTACAPONE
     Indication: GAIT DISTURBANCE
  4. ENTACAPONE. [Suspect]
     Active Substance: ENTACAPONE
     Indication: PARKINSONISM
     Route: 065
  5. CARBIDOPA LEVODOPA [Suspect]
     Active Substance: CARBIDOPA\LEVODOPA
     Indication: PARKINSONISM
     Route: 065
  6. CARBIDOPA LEVODOPA [Suspect]
     Active Substance: CARBIDOPA\LEVODOPA
     Indication: GAIT DISTURBANCE
  7. ROPINIROLE. [Suspect]
     Active Substance: ROPINIROLE
     Indication: FALL
  8. CARBIDOPA LEVODOPA [Suspect]
     Active Substance: CARBIDOPA\LEVODOPA
     Indication: FALL
  9. ROPINIROLE. [Suspect]
     Active Substance: ROPINIROLE
     Indication: GAIT DISTURBANCE

REACTIONS (3)
  - Confusional state [Unknown]
  - Drug ineffective [Unknown]
  - Somnolence [Unknown]
